FAERS Safety Report 5233718-1 (Version None)
Quarter: 2007Q1

REPORT INFORMATION
  Report Type: 
  Country: None (occurrence: None)
  Receive Date: 20070208
  Receipt Date: 20070129
  Transmission Date: 20070707
  Serious: Yes (Hospitalization)
  Sender: FDA-Public Use
  Company Number: FR-GLAXOSMITHKLINE-B0456100A

PATIENT
  Age: 66 Year
  Sex: Male

DRUGS (1)
  1. ZYBAN [Suspect]
     Dosage: 150MG PER DAY
     Route: 048
     Dates: start: 20070125, end: 20070128

REACTIONS (4)
  - HYPOTENSION [None]
  - RASH PRURITIC [None]
  - SKIN DISORDER [None]
  - SYNCOPE [None]
